FAERS Safety Report 4844804-X (Version None)
Quarter: 2005Q4

REPORT INFORMATION
  Report Type: 
  Country: None (occurrence: None)
  Receive Date: 20051129
  Receipt Date: 20051117
  Transmission Date: 20060501
  Serious: Yes (Other)
  Sender: FDA-Public Use
  Company Number: 2005002235

PATIENT
  Age: 76 Year
  Sex: Male

DRUGS (1)
  1. TARCEVA [Suspect]
     Indication: BRONCHIAL CARCINOMA
     Dosage: 150 MG (QD), ORAL
     Route: 048
     Dates: start: 20051023, end: 20051102

REACTIONS (5)
  - DIARRHOEA [None]
  - ECZEMA [None]
  - GINGIVITIS [None]
  - STOMATITIS [None]
  - WEIGHT DECREASED [None]
